FAERS Safety Report 24747823 (Version 1)
Quarter: 2024Q4

REPORT INFORMATION
  Report Type: Spontaneous
  Country: US (occurrence: None)
  Receive Date: 20241218
  Receipt Date: 20241218
  Transmission Date: 20250115
  Serious: Yes (Hospitalization)
  Sender: Public
  Company Number: None

PATIENT
  Age: 73 Year
  Sex: Male
  Weight: 85.3 kg

DRUGS (3)
  1. ACALABRUTINIB [Suspect]
     Active Substance: ACALABRUTINIB
     Dates: end: 20201123
  2. BENDAMUSTINE HYDROCHLORIDE [Suspect]
     Active Substance: BENDAMUSTINE HYDROCHLORIDE
     Dates: end: 20201028
  3. RITUXIMAB [Suspect]
     Active Substance: RITUXIMAB
     Dates: end: 20201027

REACTIONS (2)
  - Skin cancer [None]
  - Mantle cell lymphoma recurrent [None]

NARRATIVE: CASE EVENT DATE: 20241018
